FAERS Safety Report 15879326 (Version 2)
Quarter: 2019Q1

REPORT INFORMATION
  Report Type: Spontaneous
  Country: BR (occurrence: BR)
  Receive Date: 20190128
  Receipt Date: 20190304
  Transmission Date: 20190417
  Serious: Yes (Hospitalization, Other)
  Sender: FDA-Public Use
  Company Number: BR-GLAXOSMITHKLINE-BR2019GSK011545

PATIENT
  Sex: Male
  Weight: 48 kg

DRUGS (4)
  1. CLAVULIN BD [Suspect]
     Active Substance: AMOXICILLIN\CLAVULANATE POTASSIUM
     Indication: PHARYNGITIS
     Dosage: 9 ML, TID
     Route: 048
     Dates: start: 20190111
  2. HIXIZINE [Concomitant]
     Active Substance: HYDROXYZINE HYDROCHLORIDE
     Indication: PRODUCT USED FOR UNKNOWN INDICATION
     Dosage: 7.5 ML, BID
  3. CLAVULIN BD [Suspect]
     Active Substance: AMOXICILLIN\CLAVULANATE POTASSIUM
     Indication: PYREXIA
  4. ZINNAT [Suspect]
     Active Substance: CEFUROXIME AXETIL
     Indication: PRODUCT USED FOR UNKNOWN INDICATION
     Dosage: 8 ML, BID
     Route: 048
     Dates: start: 20190119, end: 20190120

REACTIONS (5)
  - Pneumonia [Unknown]
  - Product complaint [Unknown]
  - Drug ineffective [Unknown]
  - Erythema [Unknown]
  - Overdose [Recovered/Resolved]
